FAERS Safety Report 6981514-7 (Version None)
Quarter: 2010Q3

REPORT INFORMATION
  Report Type: 
  Country: None (occurrence: None)
  Receive Date: 20100914
  Receipt Date: 20100903
  Transmission Date: 20110219
  Serious: Yes (Other)
  Sender: FDA-Public Use
  Company Number: PHHY2010US56058

PATIENT
  Sex: Female

DRUGS (11)
  1. EXTAVIA [Suspect]
     Indication: MULTIPLE SCLEROSIS
     Dosage: 0.25 MG, QOD
     Route: 058
     Dates: start: 20100805, end: 20100819
  2. ESTRADIOL [Concomitant]
     Dosage: 1 MG, QD
  3. SYNTHROID [Concomitant]
     Dosage: 0.88 MG, QD
  4. DETROL [Concomitant]
     Dosage: 4 MG, QD
  5. DETROL [Concomitant]
     Dosage: 10 MG, UNK
  6. ZOLOFT [Concomitant]
     Dosage: 100 MG, QD
  7. AMBIEN [Concomitant]
     Dosage: 10 MG, PRN
  8. LYRICA [Concomitant]
     Dosage: 75 MG, TID
  9. LYRICA [Concomitant]
     Dosage: 75 MG, PRN
  10. ZYRTEC [Concomitant]
     Dosage: 10 MG, QD
  11. SERTRALINE HYDROCHLORIDE [Concomitant]
     Dosage: 100 MG, UNK

REACTIONS (9)
  - ASTHENIA [None]
  - CHILLS [None]
  - FLUSHING [None]
  - HEADACHE [None]
  - HYPERHIDROSIS [None]
  - INJECTION SITE ERYTHEMA [None]
  - MUSCLE SPASTICITY [None]
  - NAUSEA [None]
  - PYREXIA [None]
